FAERS Safety Report 4282183-X (Version None)
Quarter: 2004Q1

REPORT INFORMATION
  Report Type: 
  Country: None (occurrence: None)
  Receive Date: 20040107
  Receipt Date: 20031001
  Transmission Date: 20041129
  Serious: No
  Sender: FDA-Public Use
  Company Number: A03200302309

PATIENT
  Age: 53 Year
  Sex: Female
  Weight: 136.0791 kg

DRUGS (2)
  1. ARIXTRA [Suspect]
     Indication: DEEP VENOUS THROMBOSIS PROPHYLAXIS
     Dosage: 2.5 MG QD - SUBCUTANEOUS
     Route: 058
     Dates: start: 20030923, end: 20030930
  2. ARIXTRA [Suspect]
     Indication: SURGERY
     Dosage: 2.5 MG QD - SUBCUTANEOUS
     Route: 058
     Dates: start: 20030923, end: 20030930

REACTIONS (7)
  - CONFUSIONAL STATE [None]
  - FEELING ABNORMAL [None]
  - IRRITABILITY [None]
  - NERVOUSNESS [None]
  - PHOTOPHOBIA [None]
  - TENSION [None]
  - THIRST [None]
